FAERS Safety Report 8499523-8 (Version None)
Quarter: 2012Q3

REPORT INFORMATION
  Report Type: 
  Country: None (occurrence: None)
  Receive Date: 20120710
  Receipt Date: 20120702
  Transmission Date: 20120928
  Serious: Yes (Death, Life-Threatening, Hospitalization)
  Sender: FDA-Public Use
  Company Number: JP-TEVA-2011006105

PATIENT
  Sex: Female
  Weight: 37.5 kg

DRUGS (12)
  1. PREDNISOLONE [Suspect]
     Indication: DIFFUSE LARGE B-CELL LYMPHOMA
     Dosage: 80 MILLIGRAM;
     Route: 048
     Dates: start: 20110726
  2. PALONOSETRON HYDROCHLORIDE [Concomitant]
     Dosage: .75 MILLIGRAM;
     Dates: start: 20110913, end: 20110913
  3. BENDAMUSTINE HYDROCHLORIDE [Suspect]
     Indication: DIFFUSE LARGE B-CELL LYMPHOMA
     Dosage: 120 MG/M2;
     Route: 042
     Dates: start: 20110824, end: 20110825
  4. GRANISETRON HYDROCHLORIDE [Concomitant]
     Indication: VOMITING
     Dosage: 3 MILLIGRAM;
     Dates: start: 20110824, end: 20110825
  5. CEFMETAZOLE SODIUM [Concomitant]
     Indication: INFECTION
     Dosage: 3 GRAM;
     Dates: start: 20111008, end: 20111014
  6. BENDAMUSTINE HYDROCHLORIDE [Suspect]
     Dosage: 120 MG/M2;
     Route: 042
     Dates: start: 20110913
  7. TAZOBACTAM [Concomitant]
     Indication: PNEUMONIA ASPIRATION
     Dosage: 13.5 GRAM;
     Dates: start: 20111018, end: 20111028
  8. VINCRISTINE SULFATE [Suspect]
     Indication: DIFFUSE LARGE B-CELL LYMPHOMA
     Dosage: .9 MILLIGRAM;
     Route: 042
     Dates: start: 20110726
  9. GRANISETRON HYDROCHLORIDE [Concomitant]
     Dosage: 3 MILLIGRAM;
     Dates: start: 20110914
  10. RITUXIMAB [Suspect]
     Indication: DIFFUSE LARGE B-CELL LYMPHOMA
     Dosage: 490 MILLIGRAM;
     Route: 042
     Dates: start: 20110726
  11. CYCLOPHOSPHAMIDE [Suspect]
     Indication: DIFFUSE LARGE B-CELL LYMPHOMA
     Dosage: 490 MILLIGRAM;
     Route: 042
     Dates: start: 20110726
  12. PLATELETS [Concomitant]
     Dates: start: 20111018, end: 20111028

REACTIONS (3)
  - ILEUS PARALYTIC [None]
  - PNEUMOCYSTIS JIROVECI PNEUMONIA [None]
  - CYTOMEGALOVIRUS INFECTION [None]
